FAERS Safety Report 9988031 (Version 1)
Quarter: 2014Q1

REPORT INFORMATION
  Report Type: Spontaneous
  Country: IT (occurrence: IT)
  Receive Date: 20140307
  Receipt Date: 20140307
  Transmission Date: 20141002
  Serious: Yes (Hospitalization)
  Sender: FDA-Public Use
  Company Number: IT-ASTRAZENECA-2014SE14362

PATIENT
  Age: 25539 Day
  Sex: Female

DRUGS (6)
  1. SEROQUEL [Suspect]
     Indication: DEPRESSION
     Route: 048
  2. SEROQUEL [Suspect]
     Indication: DEPRESSION
     Route: 048
     Dates: start: 20140109, end: 20140109
  3. ENTACT [Concomitant]
     Route: 048
  4. MUTABON [Concomitant]
     Dosage: 25 MG ANTIDEPRESSANT + 2 MG FILM-COATED TABLETS
     Route: 048
  5. XANAX [Concomitant]
     Route: 048
  6. OLANZAPINE [Concomitant]

REACTIONS (4)
  - Drug abuse [Unknown]
  - Psychomotor skills impaired [Unknown]
  - Sopor [Unknown]
  - Dysarthria [Unknown]
